FAERS Safety Report 4847351-4 (Version None)
Quarter: 2005Q4

REPORT INFORMATION
  Report Type: 
  Country: None (occurrence: None)
  Receive Date: 20051207
  Receipt Date: 20051130
  Transmission Date: 20060501
  Serious: Yes (Life-Threatening, Hospitalization)
  Sender: FDA-Public Use
  Company Number: AU-ROCHE-426610

PATIENT
  Age: 75 Year
  Sex: Male

DRUGS (1)
  1. TAMIFLU [Suspect]
     Indication: INFLUENZA
     Dosage: INDICATION REPORTED AS INFLUENZA, UNQUALIFIED.
     Route: 048
     Dates: start: 20030910, end: 20030910

REACTIONS (2)
  - DYSPNOEA [None]
  - VOMITING [None]
